FAERS Safety Report 10223130 (Version 1)
Quarter: 2014Q2

REPORT INFORMATION
  Report Type: Spontaneous
  Country: GB (occurrence: GB)
  Receive Date: 20140607
  Receipt Date: 20140607
  Transmission Date: 20141212
  Serious: Yes (Other)
  Sender: FDA-Public Use
  Company Number: PHHY2014GB066418

PATIENT
  Age: 17 Year
  Sex: Female

DRUGS (8)
  1. CITALOPRAM [Suspect]
     Indication: POST-TRAUMATIC STRESS DISORDER
     Dosage: 40 MG, UNK
     Route: 065
  2. CITALOPRAM [Suspect]
     Indication: AUTISM SPECTRUM DISORDER
  3. DIAZEPAM [Suspect]
     Indication: POST-TRAUMATIC STRESS DISORDER
     Route: 065
  4. DIAZEPAM [Suspect]
     Indication: AUTISM SPECTRUM DISORDER
  5. OLANZAPINE [Suspect]
     Indication: AUTISM SPECTRUM DISORDER
     Dosage: 20 MG, UNK
     Route: 065
  6. OLANZAPINE [Suspect]
     Indication: POST-TRAUMATIC STRESS DISORDER
  7. VALIUM [Suspect]
     Indication: AUTISM SPECTRUM DISORDER
     Route: 065
  8. VALIUM [Suspect]
     Indication: PRODUCT USED FOR UNKNOWN INDICATION

REACTIONS (3)
  - Depression [Unknown]
  - Psychotic disorder [Unknown]
  - Anxiety [Unknown]
